FAERS Safety Report 8880306 (Version 5)
Quarter: 2013Q2

REPORT INFORMATION
  Report Type: Report from Study
  Country: FR (occurrence: FR)
  Receive Date: 20121101
  Receipt Date: 20130402
  Transmission Date: 20140414
  Serious: Yes (Life-Threatening, Hospitalization)
  Sender: FDA-Public Use
  Company Number: FR-PFIZER INC-2012131150

PATIENT
  Age: 18 Year
  Sex: Male
  Weight: 58 kg

DRUGS (22)
  1. ATGAM [Suspect]
     Indication: BONE MARROW FAILURE
     Dosage: 40 MG/KG/DAY
     Route: 042
     Dates: start: 20120111, end: 20120114
  2. NEORAL [Suspect]
     Indication: APLASIA
     Dosage: 175 MG, 2X/DAY
     Route: 048
     Dates: start: 20120111
  3. NOXAFIL [Concomitant]
     Dosage: 200 MG, 3X/DAY
     Route: 048
     Dates: start: 201201
  4. SOLU-MEDROL [Concomitant]
     Dosage: 2 MG/KG A DAY
  5. EXJADE [Concomitant]
     Indication: TRANSFUSION
     Dosage: 1125 MG, 1X/DAY
     Route: 048
     Dates: start: 20120208
  6. BLOOD CELLS, PACKED HUMAN [Concomitant]
     Indication: TRANSFUSION
     Dosage: UNK
     Dates: start: 201201
  7. ZELITREX [Concomitant]
     Dosage: 500 MG, 2X/DAY
     Route: 048
     Dates: start: 20120228
  8. PENTACARINAT ^AVENTIS^ [Concomitant]
     Dosage: 1 DF, MONTHLY
     Route: 055
     Dates: start: 201202
  9. VANCOMYCIN [Concomitant]
     Dosage: UNK
     Route: 042
     Dates: start: 201201, end: 20120113
  10. TIENAM [Concomitant]
     Dosage: UNK
     Route: 048
     Dates: start: 201201, end: 201203
  11. CIFLOX [Concomitant]
     Dosage: UNK
     Route: 048
     Dates: start: 201201, end: 201202
  12. VFEND [Concomitant]
     Dosage: UNK
     Route: 048
     Dates: start: 201201, end: 201202
  13. TARGOCID [Concomitant]
     Indication: DEVICE RELATED INFECTION
     Dosage: UNK
     Route: 042
     Dates: start: 20120202, end: 201203
  14. DALACIN [Concomitant]
     Indication: DEVICE RELATED INFECTION
     Dosage: UNK
     Route: 048
     Dates: start: 20120202, end: 20120217
  15. ZYVOXID [Concomitant]
     Dosage: UNK
     Route: 048
     Dates: start: 20120217, end: 201202
  16. IMOVANE [Concomitant]
     Dosage: 1 TABLET AS NEEDED
     Route: 048
     Dates: start: 20120228, end: 201203
  17. MOPRAL [Concomitant]
     Dosage: 1 DF, 1X/DAY
     Route: 048
     Dates: start: 20120228, end: 201203
  18. TAZOCILLINE [Concomitant]
     Dosage: UNK
     Route: 042
     Dates: start: 20120329, end: 201204
  19. OFLOCET [Concomitant]
     Dosage: UNK
     Route: 048
     Dates: start: 20120418, end: 201205
  20. ZOVIRAX [Concomitant]
     Dosage: UNK
     Dates: start: 201201, end: 201202
  21. ZOVIRAX [Concomitant]
     Dosage: UNK
     Dates: start: 20120329, end: 201204
  22. TRIFLUCAN [Concomitant]
     Dosage: UNK
     Dates: start: 201201, end: 201202

REACTIONS (4)
  - Device related infection [Recovered/Resolved]
  - Folliculitis [Recovered/Resolved]
  - Thyroid cancer [Not Recovered/Not Resolved]
  - Infusion related reaction [Unknown]
